FAERS Safety Report 16265818 (Version 1)
Quarter: 2019Q2

REPORT INFORMATION
  Report Type: Spontaneous
  Country: US (occurrence: US)
  Receive Date: 20190502
  Receipt Date: 20190502
  Transmission Date: 20190711
  Serious: Yes (Other)
  Sender: FDA-Public Use
  Company Number: US-BAYER-2019-085524

PATIENT
  Sex: Female

DRUGS (2)
  1. MAGNEVIST [Suspect]
     Active Substance: GADOPENTETATE DIMEGLUMINE
     Indication: NUCLEAR MAGNETIC RESONANCE IMAGING
  2. MULTIHANCE [Suspect]
     Active Substance: GADOBENATE DIMEGLUMINE
     Indication: NUCLEAR MAGNETIC RESONANCE IMAGING

REACTIONS (20)
  - Joint swelling [None]
  - Bone pain [None]
  - Arthralgia [None]
  - Pulmonary pain [None]
  - Fluid retention [None]
  - Blindness [None]
  - White matter lesion [None]
  - Anxiety [None]
  - Emotional distress [None]
  - Dry skin [None]
  - Gadolinium deposition disease [None]
  - Nephrogenic systemic fibrosis [None]
  - Contrast media deposition [None]
  - Skin fibrosis [None]
  - Back pain [None]
  - Injury [None]
  - Anhedonia [None]
  - Fibrosis [None]
  - Paraesthesia [None]
  - Pain [None]
